FAERS Safety Report 16028234 (Version 1)
Quarter: 2019Q1

REPORT INFORMATION
  Report Type: Report from Study
  Country: None (occurrence: US)
  Receive Date: 20190304
  Receipt Date: 20190304
  Transmission Date: 20190418
  Serious: Yes (Other)
  Sender: FDA-Public Use
  Company Number: US-ABBVIE-19K-163-2687988-00

PATIENT
  Age: 29 Year
  Sex: Male

DRUGS (1)
  1. HUMIRA [Suspect]
     Active Substance: ADALIMUMAB
     Indication: COLITIS ULCERATIVE
     Route: 058
     Dates: end: 20190107

REACTIONS (4)
  - Small intestine ulcer [Not Recovered/Not Resolved]
  - Stoma site infection [Unknown]
  - Skin maceration [Unknown]
  - Wound [Unknown]

NARRATIVE: CASE EVENT DATE: 2019
